FAERS Safety Report 6025468-9 (Version None)
Quarter: 2008Q4

REPORT INFORMATION
  Report Type: 
  Country: None (occurrence: None)
  Receive Date: 20081231
  Receipt Date: 20081219
  Transmission Date: 20090506
  Serious: Yes (Death)
  Sender: FDA-Public Use
  Company Number: JP-PFIZER INC-2008154191

PATIENT

DRUGS (12)
  1. SILDENAFIL CITRATE [Suspect]
     Indication: PULMONARY HYPERTENSION
     Dosage: 20 MG, UNK
     Route: 048
     Dates: start: 20081012, end: 20081204
  2. SILDENAFIL CITRATE [Suspect]
     Dosage: 25 MG, 4X/DAY
     Route: 048
     Dates: start: 20070109, end: 20081204
  3. DORNER [Concomitant]
     Dosage: UNK
     Route: 048
     Dates: start: 20050204
  4. TRACLEER [Concomitant]
     Dosage: UNK
     Route: 048
     Dates: start: 20080617
  5. WARFARIN POTASSIUM [Concomitant]
     Dosage: UNK
     Route: 048
     Dates: start: 20060201
  6. LASIX [Concomitant]
     Dosage: UNK
     Route: 048
     Dates: start: 20060201
  7. DIART [Concomitant]
     Dosage: UNK
     Route: 048
     Dates: start: 20061214
  8. ALDACTONE [Concomitant]
     Dosage: UNK
     Route: 048
     Dates: start: 20060301
  9. LANIRAPID [Concomitant]
     Indication: CARDIAC FAILURE
     Dosage: UNK
     Route: 048
     Dates: start: 20060201
  10. CLARITHROMYCIN [Concomitant]
     Indication: EMPHYSEMA
     Dosage: UNK
     Route: 048
     Dates: start: 20060301
  11. CRESTOR [Concomitant]
     Indication: DYSLIPIDAEMIA
     Dosage: UNK
     Route: 048
     Dates: start: 20060301
  12. URINORM [Concomitant]
     Indication: HYPERURICAEMIA
     Dosage: UNK
     Route: 048
     Dates: start: 20060201

REACTIONS (1)
  - RESPIRATORY FAILURE [None]
